FAERS Safety Report 25542058 (Version 1)
Quarter: 2025Q3

REPORT INFORMATION
  Report Type: Spontaneous
  Country: US (occurrence: US)
  Receive Date: 20250711
  Receipt Date: 20250711
  Transmission Date: 20251021
  Serious: Yes (Other)
  Sender: NOVO NORDISK
  Company Number: US-NOVOPROD-1474579

PATIENT
  Sex: Female
  Weight: 101 kg

DRUGS (2)
  1. WEGOVY [Suspect]
     Active Substance: SEMAGLUTIDE
     Indication: Product used for unknown indication
  2. ZEPBOUND [Concomitant]
     Active Substance: TIRZEPATIDE
     Indication: Product used for unknown indication

REACTIONS (4)
  - Hypertension [Unknown]
  - Visual field defect [Unknown]
  - Eye swelling [Unknown]
  - Obstructive sleep apnoea syndrome [Unknown]
